FAERS Safety Report 6457496-3 (Version None)
Quarter: 2009Q4

REPORT INFORMATION
  Report Type: 
  Country: None (occurrence: None)
  Receive Date: 20091125
  Receipt Date: 20091111
  Transmission Date: 20100525
  Serious: Yes (Hospitalization, Disabling, Other)
  Sender: FDA-Public Use
  Company Number: PHHY2009GB50192

PATIENT
  Age: 48 Year
  Sex: Male

DRUGS (8)
  1. CLOZAPINE [Suspect]
     Indication: SCHIZOPHRENIA
     Dosage: 700 MG, QD
     Route: 048
     Dates: start: 20051201, end: 20070701
  2. AMISULPRIDE [Concomitant]
     Indication: SCHIZOPHRENIA
     Dosage: 200 MG, BID
     Route: 048
  3. DOCUSATE [Concomitant]
     Indication: CONSTIPATION
  4. HYOSCINE HBR HYT [Concomitant]
     Indication: SALIVARY HYPERSECRETION
     Dosage: 300 UG, QD
     Route: 048
  5. LORAZEPAM [Concomitant]
     Indication: ANXIETY
     Dosage: 1 MG, BID
     Route: 048
  6. MIRTAZAPINE [Concomitant]
     Indication: DEPRESSION
     Dosage: 15 MG, QD
     Route: 048
  7. OMEPRAZOLE [Concomitant]
     Indication: DYSPEPSIA
     Dosage: 20 MG, BID
     Route: 048
  8. SENNA [Concomitant]
     Indication: CONSTIPATION

REACTIONS (4)
  - ANTIPHOSPHOLIPID SYNDROME [None]
  - CEREBROVASCULAR ACCIDENT [None]
  - PROTHROMBIN TIME PROLONGED [None]
  - RUSSELL'S VIPER VENOM TIME ABNORMAL [None]
